FAERS Safety Report 22356374 (Version 2)
Quarter: 2023Q2

REPORT INFORMATION
  Report Type: Report from Study
  Country: US (occurrence: US)
  Receive Date: 20230523
  Receipt Date: 20230526
  Transmission Date: 20230722
  Serious: No
  Sender: FDA-Public Use
  Company Number: US-002147023-NVSC2023US115107

PATIENT
  Sex: Female

DRUGS (1)
  1. KESIMPTA [Interacting]
     Active Substance: OFATUMUMAB
     Indication: Multiple sclerosis
     Dosage: 20 MG (INJECT 20MG (1 PEN) SUBCUTANEOUSLY ON DAY 1, 7, 14 AND DAY 30)
     Route: 058

REACTIONS (5)
  - Asthenia [Unknown]
  - Pyrexia [Unknown]
  - Headache [Unknown]
  - Myalgia [Unknown]
  - Chills [Unknown]
